FAERS Safety Report 10196704 (Version 1)
Quarter: 2014Q2

REPORT INFORMATION
  Report Type: Spontaneous
  Country: US (occurrence: US)
  Receive Date: 20140527
  Receipt Date: 20140527
  Transmission Date: 20141212
  Serious: Yes (Hospitalization, Disabling, Other)
  Sender: FDA-Public Use
  Company Number: US-PFIZER INC-2014143703

PATIENT
  Age: 50 Year
  Sex: Male

DRUGS (5)
  1. INDERAL LA [Suspect]
     Indication: ESSENTIAL TREMOR
     Dosage: 160 MG, DAILY
     Route: 048
     Dates: start: 1999, end: 2013
  2. LIPITOR [Concomitant]
     Dosage: UNK
  3. EFEXOR [Concomitant]
     Dosage: UNK
  4. SEROQUEL [Concomitant]
     Dosage: UNK
  5. ATIVAN [Concomitant]
     Dosage: UNK

REACTIONS (11)
  - Overdose [Recovered/Resolved]
  - Physical disability [Recovered/Resolved]
  - Crying [Recovered/Resolved]
  - Memory impairment [Not Recovered/Not Resolved]
  - Depression [Recovered/Resolved]
  - Loss of consciousness [Recovered/Resolved]
  - Toxicity to various agents [Recovered/Resolved]
  - Heart rate decreased [Recovered/Resolved]
  - Hypotension [Recovered/Resolved]
  - Limb injury [Recovered/Resolved]
  - Asthenia [Not Recovered/Not Resolved]
